FAERS Safety Report 5164342-7 (Version None)
Quarter: 2006Q4

REPORT INFORMATION
  Report Type: 
  Country: None (occurrence: None)
  Receive Date: 20061205
  Receipt Date: 20061126
  Transmission Date: 20070319
  Serious: Yes (Other)
  Sender: FDA-Public Use
  Company Number: GB-GLAXOSMITHKLINE-B0409568C

PATIENT
  Age: 59 Year
  Sex: Male

DRUGS (4)
  1. IODINE I 131 TOSITUMOMAB [Suspect]
     Indication: NON-HODGKIN'S LYMPHOMA
     Route: 042
     Dates: start: 19990122, end: 19990122
  2. TOSITUMOMAB [Suspect]
     Indication: NON-HODGKIN'S LYMPHOMA
     Route: 042
     Dates: start: 19990122, end: 19990122
  3. IODINE I 131 TOSITUMOMAB [Suspect]
     Route: 042
     Dates: start: 19990129, end: 19990129
  4. TOSITUMOMAB [Suspect]
     Route: 042
     Dates: start: 19990129, end: 19990129

REACTIONS (1)
  - MYELODYSPLASTIC SYNDROME [None]
